FAERS Safety Report 4746707-8 (Version None)
Quarter: 2005Q3

REPORT INFORMATION
  Report Type: 
  Country: None (occurrence: None)
  Receive Date: 20050816
  Receipt Date: 20050816
  Transmission Date: 20060218
  Serious: Yes (Hospitalization)
  Sender: FDA-Public Use
  Company Number: None

PATIENT
  Age: 58 Year
  Sex: Male
  Weight: 102 kg

DRUGS (11)
  1. INTEGRILIN [Suspect]
     Indication: ANTIPLATELET THERAPY
     Dosage: 2(8.5ML BOLUSES)/15 ML/ HR IV
     Route: 042
     Dates: start: 20050810, end: 20050811
  2. INTEGRILIN [Suspect]
  3. PREDNISONE [Concomitant]
  4. METHOTREXATE [Concomitant]
  5. COZAAR [Concomitant]
  6. PLAVIX [Concomitant]
  7. NIASPAN [Concomitant]
  8. GLUCOSAMINE [Concomitant]
  9. NASACORT [Concomitant]
  10. RED YEAST [Concomitant]
  11. FOLIC ACID [Concomitant]

REACTIONS (6)
  - ARRHYTHMIA [None]
  - CARDIAC ENZYMES INCREASED [None]
  - CHEST PAIN [None]
  - DRUG INEFFECTIVE [None]
  - EXTRASYSTOLES [None]
  - POST PROCEDURAL COMPLICATION [None]
